FAERS Safety Report 14674983 (Version 17)
Quarter: 2019Q4

REPORT INFORMATION
  Report Type: Spontaneous
  Country: PL (occurrence: PL)
  Receive Date: 20180323
  Receipt Date: 20191014
  Transmission Date: 20200122
  Serious: Yes (Other)
  Sender: FDA-Public Use
  Company Number: PL-AUROBINDO-AUR-APL-2018-011429

PATIENT
  Age: 57 Year
  Sex: Male
  Weight: 86 kg

DRUGS (28)
  1. DULOXETINE HYDROCHLORIDE. [Concomitant]
     Active Substance: DULOXETINE HYDROCHLORIDE
     Indication: PAIN MANAGEMENT
     Dosage: 30 MILLIGRAM, IN THE MORNING
     Route: 065
  2. METFORMIN [Concomitant]
     Active Substance: METFORMIN HYDROCHLORIDE
     Indication: BLOOD GLUCOSE FLUCTUATION
     Dosage: UNK
     Route: 065
  3. ZOFENIL [Concomitant]
     Active Substance: ZOFENOPRIL
     Indication: PRODUCT USED FOR UNKNOWN INDICATION
     Dosage: UNK
     Route: 065
  4. METFORMIN [Concomitant]
     Active Substance: METFORMIN HYDROCHLORIDE
     Indication: TYPE 2 DIABETES MELLITUS
  5. PARACETAMOL [Concomitant]
     Active Substance: ACETAMINOPHEN
     Indication: PRODUCT USED FOR UNKNOWN INDICATION
     Dosage: UNK
     Route: 065
  6. DIAZEPAM. [Interacting]
     Active Substance: DIAZEPAM
     Indication: INITIAL INSOMNIA
     Dosage: UNK
     Route: 065
  7. DULOXETINE HYDROCHLORIDE. [Concomitant]
     Active Substance: DULOXETINE HYDROCHLORIDE
     Indication: PAIN
  8. FLUOXETINE [Interacting]
     Active Substance: FLUOXETINE HYDROCHLORIDE
     Indication: PRODUCT USED FOR UNKNOWN INDICATION
  9. ZOLPIDEM [Interacting]
     Active Substance: ZOLPIDEM TARTRATE
     Indication: INSOMNIA
     Dosage: 10 MILLIGRAM, ONCE A DAY
     Route: 048
     Dates: start: 20171122, end: 20171124
  10. DEPREXETIN [Interacting]
     Active Substance: FLUOXETINE HYDROCHLORIDE
     Indication: PAIN
     Dosage: 40 MILLIGRAM, ONCE A DAY
     Route: 048
     Dates: start: 20171103, end: 20171122
  11. DEPREXETIN [Interacting]
     Active Substance: FLUOXETINE HYDROCHLORIDE
     Indication: DIABETES MELLITUS
  12. METFORMIN [Concomitant]
     Active Substance: METFORMIN HYDROCHLORIDE
     Indication: INSOMNIA
  13. FLUOXETINE [Interacting]
     Active Substance: FLUOXETINE HYDROCHLORIDE
     Indication: FIBROMYALGIA
  14. DIAZEPAM. [Interacting]
     Active Substance: DIAZEPAM
     Indication: SLEEP DISORDER
  15. DULOXETINE HYDROCHLORIDE. [Concomitant]
     Active Substance: DULOXETINE HYDROCHLORIDE
     Indication: FIBROMYALGIA
     Dosage: 120 MILLIGRAM
     Route: 065
  16. TRAZODONE HYDROCHLORIDE. [Concomitant]
     Active Substance: TRAZODONE HYDROCHLORIDE
     Indication: INSOMNIA
     Dosage: 100 MILLIGRAM, 75 MG, QD THREE HOURS BEFORE PLANNED BEDTIME
     Route: 065
  17. FLUOXETINE [Suspect]
     Active Substance: FLUOXETINE HYDROCHLORIDE
     Indication: PAIN
     Dosage: 40 MILLIGRAM, TWO TIMES A DAY, 2 X 20 MG IN THE MORNING AND IN THE EVENING
     Route: 065
     Dates: start: 20171103, end: 20171122
  18. ZOLPIDEM [Interacting]
     Active Substance: ZOLPIDEM TARTRATE
     Indication: FIBROMYALGIA
     Dosage: 10 MILLIGRAM, ONCE A DAY, BEFORE BED
     Route: 048
  19. DIAZEPAM. [Interacting]
     Active Substance: DIAZEPAM
     Indication: NIGHTMARE
     Dosage: 10 MILLIGRAM, ONCE A DAY, BEFORE BED
     Route: 065
  20. MIANSERIN [Interacting]
     Active Substance: MIANSERIN
     Indication: NIGHTMARE
     Dosage: 20 MILLIGRAM, 20 MG, 20 DAYS
     Route: 065
  21. MIANSERIN [Interacting]
     Active Substance: MIANSERIN
     Indication: INSOMNIA
     Dosage: 20 MILLIGRAM, ONCE A DAY, HALF AN HOUR BEFORE BED
     Route: 065
  22. TRAZODONE HYDROCHLORIDE. [Concomitant]
     Active Substance: TRAZODONE HYDROCHLORIDE
     Dosage: 75 MILLIGRAM, ONCE A DAY, 75 MG, QD THREE HOURS BEFORE PLANNED BEDTIME
     Route: 065
  23. BISOCARD [Concomitant]
     Active Substance: BISOPROLOL
     Indication: PRODUCT USED FOR UNKNOWN INDICATION
     Dosage: UNK
     Route: 065
  24. FLUOXETINE [Interacting]
     Active Substance: FLUOXETINE HYDROCHLORIDE
     Indication: DIABETES MELLITUS
     Dosage: 40 MILLIGRAM, ONCE A DAY (20 MG, 2X PER DAY, IN THE MORNING AND EVENING)
     Route: 065
  25. ZOLPIDEM [Interacting]
     Active Substance: ZOLPIDEM TARTRATE
     Indication: SLEEP DISORDER
     Dosage: 10 MILLIGRAM, ONCE A DAY, BEFORE BED
     Route: 048
  26. MIANSERIN [Interacting]
     Active Substance: MIANSERIN
     Indication: SLEEP DISORDER
  27. DEPREXETIN [Interacting]
     Active Substance: FLUOXETINE HYDROCHLORIDE
     Indication: FIBROMYALGIA
  28. SIMVASTATIN. [Concomitant]
     Active Substance: SIMVASTATIN
     Indication: PRODUCT USED FOR UNKNOWN INDICATION
     Dosage: UNK
     Route: 065

REACTIONS (16)
  - Abnormal dreams [Recovered/Resolved]
  - Off label use [Recovered/Resolved]
  - Impaired self-care [Unknown]
  - Somnolence [Recovering/Resolving]
  - Insomnia [Recovered/Resolved]
  - Initial insomnia [Recovered/Resolved]
  - Poor quality sleep [Recovered/Resolved]
  - Sleep disorder [Recovered/Resolved]
  - Drug interaction [Unknown]
  - Pain [Unknown]
  - Dry mouth [Recovering/Resolving]
  - Nightmare [Recovered/Resolved]
  - Blood glucose fluctuation [Recovered/Resolved]
  - Fibromyalgia [Unknown]
  - Drug ineffective for unapproved indication [Unknown]
  - Product prescribing error [Unknown]
